FAERS Safety Report 7747584-3 (Version None)
Quarter: 2011Q3

REPORT INFORMATION
  Report Type: 
  Country: None (occurrence: None)
  Receive Date: 20110913
  Receipt Date: 20110831
  Transmission Date: 20111222
  Serious: Yes (Hospitalization, Other)
  Sender: FDA-Public Use
  Company Number: CH-ELI_LILLY_AND_COMPANY-CH201109000310

PATIENT
  Age: 67 Year
  Sex: Female

DRUGS (5)
  1. ATORVASTATIN CALCIUM [Concomitant]
     Route: 048
  2. FLUOXETINE HYDROCHLORIDE [Suspect]
     Dosage: 20 MG, QD
     Route: 048
  3. ASPIRIN [Concomitant]
     Dosage: 100 MG, QD
     Route: 048
     Dates: start: 20110101, end: 20110703
  4. PLAVIX [Concomitant]
     Dosage: 75 MG, QD
     Route: 048
     Dates: start: 20110101, end: 20110703
  5. METOPROLOL SUCCINATE [Concomitant]
     Route: 048

REACTIONS (6)
  - ANAEMIA [None]
  - GASTROINTESTINAL HAEMORRHAGE [None]
  - SYNCOPE [None]
  - DRUG INTERACTION [None]
  - GASTROINTESTINAL INJURY [None]
  - MELAENA [None]
